FAERS Safety Report 24779570 (Version 1)
Quarter: 2024Q4

REPORT INFORMATION
  Report Type: Spontaneous
  Country: US (occurrence: US)
  Receive Date: 20241226
  Receipt Date: 20241226
  Transmission Date: 20250114
  Serious: No
  Sender: MERCK
  Company Number: US-009507513-2412USA008510

PATIENT
  Sex: Female
  Weight: 78.005 kg

DRUGS (14)
  1. WINREVAIR [Suspect]
     Active Substance: SOTATERCEPT-CSRK
     Indication: Product used for unknown indication
     Dosage: UNK
     Dates: start: 2024
  2. REMODULIN [Suspect]
     Active Substance: TREPROSTINIL
     Indication: Pulmonary arterial hypertension
     Dosage: 0.094 MICROGRAM PER KILOGRAM, CONTINUOUS
     Route: 058
     Dates: start: 20070920
  3. OMEPRAZOLE [Concomitant]
     Active Substance: OMEPRAZOLE
  4. WARFARIN SODIUM [Concomitant]
     Active Substance: WARFARIN SODIUM
  5. SIMVASTATIN [Concomitant]
     Active Substance: SIMVASTATIN
  6. OPSUMIT [Concomitant]
     Active Substance: MACITENTAN
  7. POTASSIUM CHLORIDE [Concomitant]
     Active Substance: POTASSIUM CHLORIDE
  8. SILDENAFIL CITRATE [Concomitant]
     Active Substance: SILDENAFIL CITRATE
  9. BENZONATATE [Concomitant]
     Active Substance: BENZONATATE
  10. OXYGEN [Concomitant]
     Active Substance: OXYGEN
  11. LETROZOLE [Concomitant]
     Active Substance: LETROZOLE
  12. SODIUM BICARBONATE [Concomitant]
     Active Substance: SODIUM BICARBONATE
  13. TORSEMIDE [Concomitant]
     Active Substance: TORSEMIDE
  14. FERROUS SULFATE [Concomitant]
     Active Substance: FERROUS SULFATE

REACTIONS (1)
  - Epistaxis [Unknown]

NARRATIVE: CASE EVENT DATE: 20240101
